FAERS Safety Report 5717303-0 (Version None)
Quarter: 2008Q2

REPORT INFORMATION
  Report Type: 
  Country: None (occurrence: None)
  Receive Date: 20080425
  Receipt Date: 20080415
  Transmission Date: 20081010
  Serious: Yes (Life-Threatening, Other)
  Sender: FDA-Public Use
  Company Number: US-RANBAXY-2008RR-14530

PATIENT

DRUGS (2)
  1. FLUCONAZOLE [Suspect]
     Indication: ABSCESS FUNGAL
     Dosage: 150 MG, QD
  2. FLUCONAZOLE [Suspect]
     Indication: CANDIDURIA

REACTIONS (1)
  - TORSADE DE POINTES [None]
